FAERS Safety Report 17878756 (Version 1)
Quarter: 2020Q2

REPORT INFORMATION
  Report Type: Spontaneous
  Country: CA (occurrence: CA)
  Receive Date: 20200610
  Receipt Date: 20200610
  Transmission Date: 20200714
  Serious: Yes (Other)
  Sender: FDA-Public Use
  Company Number: CA-TEVA-2020-CA-1246267

PATIENT
  Age: 74 Year
  Sex: Female

DRUGS (8)
  1. LEVOTHYROXINE SODIUM. [Concomitant]
     Active Substance: LEVOTHYROXINE SODIUM
     Route: 048
  2. SALMETEROL/FLUTICASON ORION [Concomitant]
     Dosage: 4 DOSAGE FORMS DAILY;
  3. CELEBREX [Concomitant]
     Active Substance: CELECOXIB
     Route: 048
  4. PREDNISONE. [Concomitant]
     Active Substance: PREDNISONE
  5. HYDROXYCHLOROQUINE [Suspect]
     Active Substance: HYDROXYCHLOROQUINE
     Indication: PRODUCT USED FOR UNKNOWN INDICATION
     Route: 065
  6. ALPRAZOLAM. [Concomitant]
     Active Substance: ALPRAZOLAM
     Route: 048
  7. METHOTREXATE. [Suspect]
     Active Substance: METHOTREXATE
     Indication: RHEUMATOID ARTHRITIS
     Route: 058
  8. HUMIRA [Suspect]
     Active Substance: ADALIMUMAB
     Indication: RHEUMATOID ARTHRITIS
     Route: 058

REACTIONS (9)
  - Joint swelling [Unknown]
  - Anti-cyclic citrullinated peptide antibody positive [Unknown]
  - Off label use [Unknown]
  - Psoriasis [Unknown]
  - Therapeutic product effect incomplete [Unknown]
  - Product use issue [Unknown]
  - Arthralgia [Unknown]
  - Drug ineffective [Unknown]
  - Musculoskeletal stiffness [Unknown]
